FAERS Safety Report 8055420-3 (Version None)
Quarter: 2012Q2

REPORT INFORMATION
  Report Type: 
  Country: None (occurrence: None)
  Receive Date: 20120119
  Receipt Date: 20120117
  Transmission Date: 20120825
  Serious: Yes (Hospitalization)
  Sender: FDA-Public Use
  Company Number: JP-PFIZER INC-2011276364

PATIENT
  Age: 74 Year
  Sex: Female
  Weight: 52.5 kg

DRUGS (11)
  1. SULFAMETHOXAZOLE AND TRIMETHOPRIM [Concomitant]
     Dosage: 1 DF, 1X/DAY
     Route: 048
     Dates: start: 20100118, end: 20100208
  2. ARMODAFINIL [Suspect]
     Indication: ANTIFUNGAL TREATMENT
     Dosage: 200 MG, 1X/DAY
     Route: 048
     Dates: start: 20100118, end: 20100208
  3. PREDNISOLONE [Concomitant]
     Indication: B-CELL LYMPHOMA
     Dosage: 50 MG, 1X/DAY
     Route: 048
     Dates: start: 20100118, end: 20100208
  4. DOXORUBICIN HYDROCHLORIDE [Concomitant]
     Indication: ACUTE LYMPHOCYTIC LEUKAEMIA
  5. PROMAC /JPN/ [Suspect]
     Dosage: 75 MG, 2X/DAY
     Route: 048
     Dates: start: 20100118, end: 20100208
  6. LEVOFLOXACIN [Concomitant]
     Dosage: 250 MG, 1X/DAY
     Route: 048
     Dates: start: 20100118, end: 20100208
  7. ONCOVIN [Interacting]
     Indication: B-CELL LYMPHOMA
     Dosage: 1.7 MG, 1X/DAY
     Route: 041
     Dates: start: 20100125, end: 20100201
  8. ONCOVIN [Interacting]
     Indication: ACUTE LYMPHOCYTIC LEUKAEMIA
  9. PREDNISOLONE [Concomitant]
     Indication: ACUTE LYMPHOCYTIC LEUKAEMIA
  10. ALLOPURINOL [Concomitant]
     Dosage: 100 MG, 3X/DAY
     Route: 048
     Dates: start: 20100118, end: 20100208
  11. DOXORUBICIN HYDROCHLORIDE [Concomitant]
     Indication: B-CELL LYMPHOMA
     Dosage: 24 MG, 1X/DAY
     Route: 041
     Dates: start: 20100201, end: 20100201

REACTIONS (4)
  - ILEUS PARALYTIC [None]
  - DRUG INTERACTION [None]
  - NEUROTOXICITY [None]
  - CHEST DISCOMFORT [None]
